FAERS Safety Report 8045900-9 (Version None)
Quarter: 2012Q1

REPORT INFORMATION
  Report Type: 
  Country: None (occurrence: None)
  Receive Date: 20120113
  Receipt Date: 20120110
  Transmission Date: 20120608
  Serious: Yes (Life-Threatening, Hospitalization, Other)
  Sender: FDA-Public Use
  Company Number: US-VIIV HEALTHCARE LIMITED-A0960980A

PATIENT
  Age: 45 Year
  Sex: Male

DRUGS (4)
  1. ETRAVIRINE [Concomitant]
  2. BACTRIM [Concomitant]
  3. RALTEGRAVIR [Concomitant]
  4. SELZENTRY [Suspect]
     Indication: HIV INFECTION
     Dosage: 600MG TWICE PER DAY
     Route: 048
     Dates: start: 20111104, end: 20111228

REACTIONS (2)
  - CARDIAC FAILURE CONGESTIVE [None]
  - WEIGHT INCREASED [None]
